FAERS Safety Report 11339969 (Version 1)
Quarter: 2015Q3

REPORT INFORMATION
  Report Type: Spontaneous
  Country: US (occurrence: US)
  Receive Date: 20150805
  Receipt Date: 20150805
  Transmission Date: 20151125
  Serious: No
  Sender: FDA-Public Use
  Company Number: US-PAR PHARMACEUTICAL, INC-2014SCPR009496

PATIENT

DRUGS (3)
  1. LUMIGAN [Concomitant]
     Active Substance: BIMATOPROST
     Indication: GLAUCOMA
     Dosage: UNK UNK, OD
     Route: 047
     Dates: start: 1991
  2. ANDROGEL [Concomitant]
     Active Substance: TESTOSTERONE
     Indication: BLOOD TESTOSTERONE DECREASED
     Dosage: UNK UNK, OD
     Route: 061
     Dates: start: 2007
  3. CALCITONIN [Suspect]
     Active Substance: CALCITONIN
     Indication: OSTEOPOROSIS
     Dosage: 1 SPR, OD, ONE SPRAY IN ONE NOSTRIL
     Route: 045
     Dates: start: 20141106, end: 20141107

REACTIONS (3)
  - Product quality issue [Unknown]
  - Throat irritation [Recovered/Resolved]
  - Nasal discomfort [Recovered/Resolved]

NARRATIVE: CASE EVENT DATE: 20141106
